FAERS Safety Report 11058059 (Version 1)
Quarter: 2015Q2

REPORT INFORMATION
  Report Type: Report from Study
  Country: JP (occurrence: None)
  Receive Date: 20150417
  Receipt Date: 20150417
  Transmission Date: 20150821
  Serious: Yes (Hospitalization)
  Sender: FDA-Public Use
  Company Number: 2015-0010

PATIENT
  Age: 12 Year
  Sex: Male

DRUGS (2)
  1. ALLERGEN  EXTRACT STANDARDIZED HDM (HOUSE DUST MITE) [Suspect]
     Active Substance: DERMATOPHAGOIDES FARINAE\DERMATOPHAGOIDES PTERONYSSINUS
     Indication: ASTHMA
     Dosage: 1000AU/ML X0.1 ML
     Route: 058
     Dates: start: 20120820
  2. ALLERGEN  EXTRACT STANDARDIZED HDM (HOUSE DUST MITE) [Suspect]
     Active Substance: DERMATOPHAGOIDES FARINAE\DERMATOPHAGOIDES PTERONYSSINUS
     Indication: HOUSE DUST ALLERGY
     Dosage: 1000AU/ML X0.1 ML
     Route: 058
     Dates: start: 20120820

REACTIONS (1)
  - Gastroenteritis [None]

NARRATIVE: CASE EVENT DATE: 20150318
